FAERS Safety Report 10690918 (Version 5)
Quarter: 2015Q2

REPORT INFORMATION
  Report Type: Spontaneous
  Country: US (occurrence: US)
  Receive Date: 20150105
  Receipt Date: 20150529
  Transmission Date: 20150821
  Serious: Yes (Death, Hospitalization, Other)
  Sender: FDA-Public Use
  Company Number: US-GLAXOSMITHKLINE-US2014GSK045429

PATIENT
  Age: 78 Year
  Sex: Female
  Weight: 64.85 kg

DRUGS (3)
  1. VOTRIENT [Suspect]
     Active Substance: PAZOPANIB HYDROCHLORIDE
     Indication: RENAL CANCER METASTATIC
     Dosage: 400 MG, QD
     Route: 048
     Dates: start: 20110111
  2. VOTRIENT [Suspect]
     Active Substance: PAZOPANIB HYDROCHLORIDE
     Dosage: UNK
     Dates: start: 20101204, end: 20101220
  3. SIMVASTATIN. [Concomitant]
     Active Substance: SIMVASTATIN

REACTIONS (13)
  - Respiratory disorder [Unknown]
  - Death [Fatal]
  - Pleural effusion [Unknown]
  - Hypertension [Unknown]
  - Meningitis [Unknown]
  - Cardiac assistance device user [Unknown]
  - Urinary tract infection fungal [Unknown]
  - Cardiac failure congestive [Unknown]
  - Fluid overload [Unknown]
  - Cardiomegaly [Unknown]
  - Influenza [Not Recovered/Not Resolved]
  - Mental status changes [Unknown]
  - Pneumonia [Unknown]

NARRATIVE: CASE EVENT DATE: 201012
